FAERS Safety Report 9187697 (Version 1)
Quarter: 2013Q1

REPORT INFORMATION
  Report Type: Spontaneous
  Country: US (occurrence: US)
  Receive Date: 20130325
  Receipt Date: 20130325
  Transmission Date: 20140127
  Serious: Yes (Other)
  Sender: FDA-Public Use
  Company Number: US-PFIZER INC-2013095072

PATIENT
  Age: 56 Year
  Sex: Female
  Weight: 90.7 kg

DRUGS (5)
  1. LYRICA [Suspect]
     Indication: FIBROMYALGIA
     Dosage: 150 MG, 2X/DAY
     Route: 048
     Dates: start: 20130222, end: 201303
  2. LYRICA [Suspect]
     Dosage: 300 MG, 2X/DAY
     Dates: start: 201303
  3. EFFEXOR-XR [Concomitant]
     Dosage: 225 MG, IN A DAY
  4. LITHIUM [Concomitant]
     Dosage: 900 MG, UNK
  5. AMBIEN [Concomitant]
     Dosage: UNK

REACTIONS (3)
  - Weight increased [Not Recovered/Not Resolved]
  - Energy increased [Not Recovered/Not Resolved]
  - Insomnia [Not Recovered/Not Resolved]
